FAERS Safety Report 22290618 (Version 1)
Quarter: 2023Q2

REPORT INFORMATION
  Report Type: Spontaneous
  Country: BR (occurrence: BR)
  Receive Date: 20230505
  Receipt Date: 20230505
  Transmission Date: 20230722
  Serious: Yes (Other)
  Sender: FDA-Public Use
  Company Number: BR-BIOMARINQT-BR-2023-150112

PATIENT

DRUGS (1)
  1. VOXZOGO [Suspect]
     Active Substance: VOSORITIDE
     Indication: Product used for unknown indication
     Dosage: 0.4 MILLIGRAM
     Route: 065

REACTIONS (2)
  - Vomiting [Recovered/Resolved]
  - Weight decreased [Unknown]
